FAERS Safety Report 20151941 (Version 1)
Quarter: 2021Q4

REPORT INFORMATION
  Report Type: Spontaneous
  Country: US (occurrence: None)
  Receive Date: 20211204
  Receipt Date: 20211204
  Transmission Date: 20220303
  Serious: Yes (Other)
  Sender: FDA-Public Use
  Company Number: None

PATIENT
  Age: 28 Year
  Sex: Male
  Weight: 94.5 kg

DRUGS (4)
  1. ATENOLOL [Suspect]
     Active Substance: ATENOLOL
     Indication: Panic disorder
     Dosage: OTHER QUANTITY : 1 TABLET(S);?FREQUENCY : TWICE A DAY;?
     Route: 048
     Dates: start: 20210910, end: 20211203
  2. ATENOLOL [Suspect]
     Active Substance: ATENOLOL
     Indication: Hypertension
  3. ATENOLOL [Suspect]
     Active Substance: ATENOLOL
     Indication: Sinus tachycardia
  4. BUSPAR [Concomitant]
     Active Substance: BUSPIRONE HYDROCHLORIDE

REACTIONS (4)
  - Chest pain [None]
  - Dizziness [None]
  - Ventricular extrasystoles [None]
  - Extrasystoles [None]

NARRATIVE: CASE EVENT DATE: 20211204
